FAERS Safety Report 17930656 (Version 2)
Quarter: 2021Q1

REPORT INFORMATION
  Report Type: Spontaneous
  Country: CA (occurrence: CA)
  Receive Date: 20200623
  Receipt Date: 20210119
  Transmission Date: 20210419
  Serious: Yes (Congenital Anomaly, Other)
  Sender: FDA-Public Use
  Company Number: CA-SHIRE-CA202020077

PATIENT
  Age: 38 Year
  Sex: Female
  Weight: 114 kg

DRUGS (14)
  1. CITALOPRAM [Suspect]
     Active Substance: CITALOPRAM HYDROBROMIDE
     Indication: DEPRESSION
     Dosage: 10 MILLIGRAM, 1X/DAY:QD
     Route: 048
     Dates: start: 20191106
  2. ESCITALOPRAM [Suspect]
     Active Substance: ESCITALOPRAM OXALATE
     Dosage: 30 MILLIGRAM, QD
     Route: 048
  3. ASPIRIN. [Suspect]
     Active Substance: ASPIRIN
     Dosage: 50 MILLIGRAM, QD
     Route: 048
  4. VITAMIN B12 [Suspect]
     Active Substance: CYANOCOBALAMIN
     Indication: PRODUCT USED FOR UNKNOWN INDICATION
     Dosage: 1200 MICROGRAM, 1X/DAY:QD
     Route: 048
  5. VYVANSE [Suspect]
     Active Substance: LISDEXAMFETAMINE DIMESYLATE
     Indication: DEPRESSION
     Dosage: 20 MILLIGRAM, 1X/DAY:QD
     Route: 048
  6. ASPIRIN. [Suspect]
     Active Substance: ASPIRIN
     Indication: PREGNANCY
     Dosage: 60 MILLIGRAM, QD
     Route: 048
  7. DOXYLAMINE SUCCINATE. [Suspect]
     Active Substance: DOXYLAMINE SUCCINATE
     Indication: MORNING SICKNESS
     Dosage: 200 MILLIGRAM, 1X/DAY:QD
     Route: 048
  8. OXAZEPAM. [Suspect]
     Active Substance: OXAZEPAM
     Dosage: 15 MILLIGRAM, QD
     Route: 048
     Dates: start: 20181218
  9. SALBUTAMOL [Suspect]
     Active Substance: ALBUTEROL
     Indication: ASTHMA
     Dosage: 100 MICROGRAM, AS REQ^D
     Route: 050
  10. MONTELUKAST [Suspect]
     Active Substance: MONTELUKAST SODIUM
     Indication: ASTHMA
     Dosage: 10 MILLIGRAM, 1X/DAY:QD
     Route: 048
  11. ESCITALOPRAM [Suspect]
     Active Substance: ESCITALOPRAM OXALATE
     Indication: DEPRESSION
     Dosage: 20 MILLIGRAM, 1X/DAY:QD
     Route: 048
  12. MATERNA [ASCORBIC ACID;BETACAROTENE;BIOTIN;CALCIUM CARBONATE;CALCIUM P [Suspect]
     Active Substance: MINERALS\VITAMINS
     Indication: PREGNANCY
     Dosage: 1 DOSAGE FORM, 1X/DAY:QD
     Route: 048
  13. VITAMIN D NOS [Suspect]
     Active Substance: VITAMIN D NOS
     Indication: PRODUCT USED FOR UNKNOWN INDICATION
     Dosage: 10000 INTERNATIONAL UNIT, 1X/WEEK
     Route: 048
  14. OXAZEPAM. [Suspect]
     Active Substance: OXAZEPAM
     Indication: DEPRESSION
     Dosage: 16 MILLIGRAM, 1X/DAY:QD
     Route: 048

REACTIONS (2)
  - Intentional product use issue [Unknown]
  - Fallot^s tetralogy [Unknown]

NARRATIVE: CASE EVENT DATE: 20191027
